FAERS Safety Report 5262869-0 (Version None)
Quarter: 2007Q1

REPORT INFORMATION
  Report Type: 
  Country: None (occurrence: None)
  Receive Date: 20070312
  Receipt Date: 20070306
  Transmission Date: 20070707
  Serious: Yes (Other)
  Sender: FDA-Public Use
  Company Number: CZ-GLAXOSMITHKLINE-B0461337A

PATIENT
  Sex: Male

DRUGS (2)
  1. NIQUITIN 21MG [Suspect]
     Indication: DRUG USE FOR UNKNOWN INDICATION
     Route: 062
  2. VITAMIN C SUPPLEMENT [Suspect]

REACTIONS (10)
  - GENERAL PHYSICAL HEALTH DETERIORATION [None]
  - INSOMNIA [None]
  - POISONING [None]
  - RASH [None]
  - SCAB [None]
  - SCAR [None]
  - SKIN REACTION [None]
  - TENDERNESS [None]
  - URTICARIA [None]
  - VASCULITIS [None]
